FAERS Safety Report 8817044 (Version 1)
Quarter: 2012Q4

REPORT INFORMATION
  Report Type: Spontaneous
  Country: US (occurrence: None)
  Receive Date: 20121003
  Receipt Date: 20121003
  Transmission Date: 20130627
  Serious: Yes (Hospitalization)
  Sender: FDA-Public Use
  Company Number: None

PATIENT
  Age: 71 Year
  Sex: Male
  Weight: 79.5 kg

DRUGS (1)
  1. SULFAMETHOXAZOLE/TRIMETHOPRIM [Suspect]
     Indication: INFECTION
     Dates: start: 20120817, end: 20120830

REACTIONS (5)
  - Hyperkalaemia [None]
  - Renal failure acute [None]
  - Electrocardiogram T wave peaked [None]
  - Fatigue [None]
  - Transplant rejection [None]
